FAERS Safety Report 6750397-2 (Version None)
Quarter: 2010Q2

REPORT INFORMATION
  Report Type: 
  Country: None (occurrence: None)
  Receive Date: 20100527
  Receipt Date: 20100517
  Transmission Date: 20101027
  Serious: Yes (Other)
  Sender: FDA-Public Use
  Company Number: US-1181960

PATIENT
  Age: 82 Year
  Sex: Male

DRUGS (1)
  1. MOXIFLOXACIN [Suspect]
     Dosage: 400 MG QD ORAL
     Route: 048

REACTIONS (6)
  - ALANINE AMINOTRANSFERASE INCREASED [None]
  - ASPARTATE AMINOTRANSFERASE INCREASED [None]
  - BILE DUCT STONE [None]
  - BLOOD AMYLASE INCREASED [None]
  - LIPASE INCREASED [None]
  - VANISHING BILE DUCT SYNDROME [None]
